FAERS Safety Report 9171618 (Version 2)
Quarter: 2013Q1

REPORT INFORMATION
  Report Type: Spontaneous
  Country: CA (occurrence: None)
  Receive Date: 20130130
  Receipt Date: 20130220
  Transmission Date: 20140127
  Serious: Yes (Other)
  Sender: FDA-Public Use
  Company Number: 2012033749

PATIENT
  Age: 91 Year
  Sex: Male

DRUGS (1)
  1. PRIVIGEN [Suspect]
     Indication: IDIOPATHIC THROMBOCYTOPENIC PURPURA
     Route: 042
     Dates: start: 20121018, end: 20121018

REACTIONS (6)
  - ABO incompatibility [None]
  - Hypertension [None]
  - Coombs direct test positive [None]
  - Anti-erythrocyte antibody positive [None]
  - Anaemia [None]
  - Haematoma [None]
